FAERS Safety Report 10227717 (Version 1)
Quarter: 2014Q2

REPORT INFORMATION
  Report Type: Spontaneous
  Country: US (occurrence: None)
  Receive Date: 20140609
  Receipt Date: 20140609
  Transmission Date: 20141212
  Serious: Yes (Hospitalization)
  Sender: FDA-Public Use
  Company Number: None

PATIENT
  Age: 50 Year
  Sex: Male
  Weight: 79.2 kg

DRUGS (1)
  1. ELOXATIN [Suspect]

REACTIONS (2)
  - Hypokalaemia [None]
  - Hyperaldosteronism [None]
